FAERS Safety Report 6057132-4 (Version None)
Quarter: 2009Q1

REPORT INFORMATION
  Report Type: 
  Country: None (occurrence: None)
  Receive Date: 20090129
  Receipt Date: 20090115
  Transmission Date: 20090719
  Serious: Yes (Hospitalization)
  Sender: FDA-Public Use
  Company Number: FR-AVENTIS-200910168FR

PATIENT
  Age: 81 Year
  Sex: Male

DRUGS (8)
  1. CLAFORAN [Suspect]
     Dates: start: 20081103, end: 20081105
  2. CLAMOXYL                           /00249601/ [Suspect]
     Route: 042
     Dates: start: 20081031, end: 20081101
  3. HEMIGOXINE [Concomitant]
  4. ATARAX [Concomitant]
  5. NEXIUM [Concomitant]
  6. LASIX [Concomitant]
  7. DIFFU K [Concomitant]
  8. RIFAMYCINE [Concomitant]
     Route: 047

REACTIONS (4)
  - ERYTHEMA [None]
  - PAIN [None]
  - PRURITUS [None]
  - SKIN EXFOLIATION [None]
